FAERS Safety Report 9133748 (Version 1)
Quarter: 2013Q1

REPORT INFORMATION
  Report Type: Spontaneous
  Country: US (occurrence: US)
  Receive Date: 20130302
  Receipt Date: 20130302
  Transmission Date: 20140127
  Serious: No
  Sender: FDA-Public Use
  Company Number: US-ENDO PHARMACEUTICALS INC.-DELA20110004

PATIENT
  Sex: Male

DRUGS (1)
  1. DELATESTRYL [Suspect]
     Indication: PRODUCT USED FOR UNKNOWN INDICATION
     Route: 030
     Dates: start: 2001

REACTIONS (2)
  - Blood testosterone decreased [Not Recovered/Not Resolved]
  - Acne [Not Recovered/Not Resolved]
